FAERS Safety Report 6286885-5 (Version None)
Quarter: 2009Q3

REPORT INFORMATION
  Report Type: 
  Country: None (occurrence: None)
  Receive Date: 20090728
  Receipt Date: 20090720
  Transmission Date: 20100115
  Serious: Yes (Death, Hospitalization)
  Sender: FDA-Public Use
  Company Number: IT-MERCK-0906ITA00009

PATIENT
  Age: 70 Year
  Sex: Male

DRUGS (13)
  1. ZOCOR [Suspect]
     Indication: HYPERCHOLESTEROLAEMIA
     Route: 048
     Dates: start: 20081202, end: 20090227
  2. CYCLOSPORINE [Suspect]
     Route: 048
     Dates: start: 20081202, end: 20090227
  3. OMEGA-3 ACID ETHYL ESTERS [Concomitant]
     Route: 048
     Dates: start: 20051015, end: 20090226
  4. ALLOPURINOL [Concomitant]
     Route: 048
     Dates: start: 20080430, end: 20090226
  5. TORSEMIDE [Concomitant]
     Route: 048
     Dates: start: 20070821, end: 20090226
  6. BECLOMETHASONE DIPROPIONATE [Concomitant]
     Dates: start: 20060825, end: 20090226
  7. FENOTEROL HYDROBROMIDE AND IPRATROPIUM BROMIDE [Concomitant]
     Dates: start: 20060825, end: 20090226
  8. TIOTROPIUM BROMIDE [Concomitant]
     Dates: start: 20060720, end: 20090226
  9. FUROSEMIDE SODIUM [Concomitant]
     Route: 048
     Dates: start: 20060608, end: 20090226
  10. IRBESARTAN [Concomitant]
     Route: 048
     Dates: start: 20051112, end: 20090226
  11. WARFARIN SODIUM [Concomitant]
     Route: 048
     Dates: start: 20051112, end: 20090226
  12. RAMIPRIL [Concomitant]
     Route: 048
     Dates: start: 20051112, end: 20090226
  13. OMEPRAZOLE SODIUM [Concomitant]
     Route: 048
     Dates: start: 20051015, end: 20090226

REACTIONS (5)
  - ASTHENIA [None]
  - HYPERKALAEMIA [None]
  - OLIGURIA [None]
  - RENAL FAILURE ACUTE [None]
  - RHABDOMYOLYSIS [None]
